FAERS Safety Report 6016018-1 (Version None)
Quarter: 2008Q4

REPORT INFORMATION
  Report Type: 
  Country: None (occurrence: None)
  Receive Date: 20081218
  Receipt Date: 20081201
  Transmission Date: 20090506
  Serious: Yes (Hospitalization)
  Sender: FDA-Public Use
  Company Number: 8040189

PATIENT
  Age: 15 Year
  Sex: Male
  Weight: 30 kg

DRUGS (1)
  1. EQUASYM [Suspect]
     Dosage: 30 MG /D
     Dates: end: 20081129

REACTIONS (1)
  - BRAIN STEM HAEMORRHAGE [None]
